FAERS Safety Report 4317773-9 (Version None)
Quarter: 2004Q1

REPORT INFORMATION
  Report Type: 
  Country: None (occurrence: None)
  Receive Date: 20040315
  Receipt Date: 20040304
  Transmission Date: 20041129
  Serious: Yes (Hospitalization, Other)
  Sender: FDA-Public Use
  Company Number: PHBS2004CA03133

PATIENT
  Age: 42 Year
  Sex: Female

DRUGS (5)
  1. IMATINIB [Suspect]
     Indication: BLAST CRISIS IN MYELOGENOUS LEUKAEMIA
     Dosage: 300 MG, BID
     Route: 048
  2. CYCLOSPORINE [Suspect]
     Indication: STEM CELL TRANSPLANT
     Route: 065
  3. CYCLOPHOSPHAMIDE [Concomitant]
     Dosage: 60 MG/KG/DAY
  4. METHOTREXATE [Concomitant]
     Dosage: UNK, UNK
     Route: 037
  5. METHOTREXATE [Concomitant]
     Dosage: UNK, UNK
     Route: 065

REACTIONS (8)
  - CSF WHITE BLOOD CELL COUNT INCREASED [None]
  - FEBRILE NEUTROPENIA [None]
  - GRAFT VERSUS HOST DISEASE [None]
  - HEADACHE [None]
  - LEUKAEMIA RECURRENT [None]
  - MUCOSAL INFLAMMATION [None]
  - PERIPHERAL BLOOD STEM CELL APHERESIS [None]
  - STAPHYLOCOCCAL INFECTION [None]
